FAERS Safety Report 13575814 (Version 1)
Quarter: 2017Q2

REPORT INFORMATION
  Report Type: Spontaneous
  Country: US (occurrence: US)
  Receive Date: 20170524
  Receipt Date: 20170524
  Transmission Date: 20170830
  Serious: Yes (Other)
  Sender: FDA-Public Use
  Company Number: US-ASTRAZENECA-2017SE53624

PATIENT
  Age: 668 Month
  Sex: Male
  Weight: 79.8 kg

DRUGS (24)
  1. ASPIRIN. [Concomitant]
     Active Substance: ASPIRIN
     Route: 048
  2. FOLVITE [Concomitant]
     Active Substance: FOLIC ACID
     Route: 048
  3. METHOTREXATE. [Suspect]
     Active Substance: METHOTREXATE
     Route: 048
  4. HUMIRA [Suspect]
     Active Substance: ADALIMUMAB
     Dosage: 40 MG/0.8 ML, ONE PEN EVERY TWO WEEKS
     Route: 058
  5. GLUCOTROL [Concomitant]
     Active Substance: GLIPIZIDE
     Route: 048
  6. VIAGRA [Concomitant]
     Active Substance: SILDENAFIL CITRATE
     Dosage: 1-2 TABS AS NEEDED 1 HOUR PRIOR TO INTERCOURSE
     Route: 048
  7. ACTOS [Concomitant]
     Active Substance: PIOGLITAZONE HYDROCHLORIDE
     Route: 048
  8. METHOTREXATE. [Suspect]
     Active Substance: METHOTREXATE
     Route: 048
  9. METHOTREXATE. [Suspect]
     Active Substance: METHOTREXATE
     Route: 048
  10. TOFACITINIB [Concomitant]
     Active Substance: TOFACITINIB
  11. TEMOVATE [Concomitant]
     Active Substance: CLOBETASOL PROPIONATE
     Dosage: APPLY TO AFFECTED AREA ON SKIN TWICE DAILY
     Route: 061
  12. JANUMET [Concomitant]
     Active Substance: METFORMIN HYDROCHLORIDE\SITAGLIPTIN PHOSPHATE
     Dosage: 50/1000 MG DAILY
     Route: 048
  13. NIZORAL [Concomitant]
     Active Substance: KETOCONAZOLE
     Indication: FUNGAL INFECTION
     Dosage: APPLY TO AFFECTED AREA ON SCROTUM TWICE DAILY
     Route: 061
  14. ANTIVERT [Concomitant]
     Active Substance: MECLIZINE HYDROCHLORIDE
     Route: 048
  15. PRILOSEC [Suspect]
     Active Substance: OMEPRAZOLE MAGNESIUM
     Route: 048
  16. CRESTOR [Suspect]
     Active Substance: ROSUVASTATIN CALCIUM
     Route: 048
  17. PREDNISONE. [Concomitant]
     Active Substance: PREDNISONE
  18. PROPRANOLOL HYDROCHLORIDE. [Suspect]
     Active Substance: PROPRANOLOL HYDROCHLORIDE
     Route: 048
  19. METHOTREXATE. [Suspect]
     Active Substance: METHOTREXATE
     Route: 048
  20. NAPROSYN [Concomitant]
     Active Substance: NAPROXEN
     Indication: ARTHRALGIA
     Route: 048
  21. CELEXA [Concomitant]
     Active Substance: CITALOPRAM HYDROBROMIDE
     Route: 048
  22. MELOXICAM. [Concomitant]
     Active Substance: MELOXICAM
  23. MOBIC [Concomitant]
     Active Substance: MELOXICAM
     Route: 048
  24. TOPAMAX [Concomitant]
     Active Substance: TOPIRAMATE
     Route: 048

REACTIONS (7)
  - Abnormal dreams [Unknown]
  - Fatigue [Unknown]
  - Dyspnoea [Unknown]
  - Drug hypersensitivity [Unknown]
  - Rotator cuff syndrome [Unknown]
  - Rheumatoid arthritis [Unknown]
  - Rash [Unknown]

NARRATIVE: CASE EVENT DATE: 201603
